FAERS Safety Report 8314250-5 (Version None)
Quarter: 2012Q2

REPORT INFORMATION
  Report Type: 
  Country: None (occurrence: None)
  Receive Date: 20120426
  Receipt Date: 20120423
  Transmission Date: 20120825
  Serious: Yes (Hospitalization)
  Sender: FDA-Public Use
  Company Number: PHHY2012GB034247

PATIENT
  Age: 68 Year
  Sex: Female

DRUGS (2)
  1. SIMPONI [Suspect]
     Dosage: UNK
     Route: 058
     Dates: start: 20120323
  2. WARFARIN SODIUM [Suspect]

REACTIONS (4)
  - HAEMOGLOBIN DECREASED [None]
  - LARGE INTESTINAL ULCER HAEMORRHAGE [None]
  - DYSPNOEA [None]
  - JOINT SWELLING [None]
